APPROVED DRUG PRODUCT: FAMCICLOVIR
Active Ingredient: FAMCICLOVIR
Strength: 500MG
Dosage Form/Route: TABLET;ORAL
Application: A078278 | Product #003
Applicant: CIPLA LTD
Approved: Mar 21, 2011 | RLD: No | RS: No | Type: DISCN